FAERS Safety Report 6590517-6 (Version None)
Quarter: 2010Q1

REPORT INFORMATION
  Report Type: 
  Country: None (occurrence: None)
  Receive Date: 20100219
  Receipt Date: 20100216
  Transmission Date: 20100710
  Serious: Yes (Other)
  Sender: FDA-Public Use
  Company Number: CH-ROCHE-685591

PATIENT
  Age: 54 Year
  Sex: Male

DRUGS (4)
  1. BEVACIZUMAB [Suspect]
     Dosage: FREQUENCY REPORTED AS 2 WEEKS; DOSE: 5 MG/KG BODY WEIGHT
     Route: 042
     Dates: start: 20091109, end: 20100208
  2. IRINOTECAN HCL [Concomitant]
     Dosage: DOSE REPORTED AS 145
     Dates: start: 20091109
  3. FLUOROURACIL [Concomitant]
     Dates: start: 20091109
  4. LEUCOVORIN CALCIUM [Concomitant]
     Dosage: DOSE REPORTED AS 30
     Dates: start: 20091109

REACTIONS (1)
  - MALIGNANT NEOPLASM PROGRESSION [None]
